FAERS Safety Report 24292805 (Version 1)
Quarter: 2024Q3

REPORT INFORMATION
  Report Type: Spontaneous
  Country: US (occurrence: None)
  Receive Date: 20240906
  Receipt Date: 20240906
  Transmission Date: 20241016
  Serious: No
  Sender: DOMPE FARMACEUTICI
  Company Number: US-FARMAPROD-202310-3063

PATIENT
  Age: 61 Year
  Sex: Female

DRUGS (18)
  1. OXERVATE [Suspect]
     Active Substance: CENEGERMIN-BKBJ
     Indication: Neurotrophic keratopathy
     Route: 047
     Dates: start: 20230920
  2. OXERVATE [Suspect]
     Active Substance: CENEGERMIN-BKBJ
  3. DRY EYE RELIEF [Concomitant]
     Dosage: 1-0.2-0.2%
  4. GENTEAL TEARS [Concomitant]
     Active Substance: DEXTRAN 70\HYPROMELLOSE 2910 (4000 MPA.S)
     Dosage: 0.1-.3-.2%
  5. SYSTANE COMPLETE [Concomitant]
     Active Substance: PROPYLENE GLYCOL
  6. REFRESH P.M. [Concomitant]
     Active Substance: MINERAL OIL\PETROLATUM
     Dosage: 42.5-57.3%
  7. VITAMINS [Concomitant]
     Active Substance: VITAMINS
  8. OZEMPIC [Concomitant]
     Active Substance: SEMAGLUTIDE
     Dosage: 0.25-0.5 PEN INJECTOR
  9. HUMULIN R [Concomitant]
     Active Substance: INSULIN HUMAN
     Dosage: VIAL
  10. VITAMIN D2 [Concomitant]
     Active Substance: ERGOCALCIFEROL
  11. HUMULIN N [Concomitant]
     Active Substance: INSULIN HUMAN
     Dosage: VIAL
  12. EZETIMIBE [Concomitant]
     Active Substance: EZETIMIBE
  13. OXYBUTYNIN CHLORIDE [Concomitant]
     Active Substance: OXYBUTYNIN CHLORIDE
  14. PANTOPRAZOLE SODIUM [Concomitant]
     Active Substance: PANTOPRAZOLE SODIUM
  15. GABAPENTIN [Concomitant]
     Active Substance: GABAPENTIN
  16. CARVEDILOL [Concomitant]
     Active Substance: CARVEDILOL
  17. ATORVASTATIN CALCIUM [Concomitant]
     Active Substance: ATORVASTATIN CALCIUM
  18. AMLODIPINE BESYLATE [Concomitant]
     Active Substance: AMLODIPINE BESYLATE

REACTIONS (1)
  - Inappropriate schedule of product administration [Unknown]

NARRATIVE: CASE EVENT DATE: 20231012
